FAERS Safety Report 5137594-7 (Version None)
Quarter: 2006Q4

REPORT INFORMATION
  Report Type: 
  Country: None (occurrence: None)
  Receive Date: 20061030
  Receipt Date: 20051130
  Transmission Date: 20070319
  Serious: No
  Sender: FDA-Public Use
  Company Number: US-GLAXOSMITHKLINE-A0584067A

PATIENT
  Age: 48 Year
  Sex: Female

DRUGS (8)
  1. ADVAIR HFA [Suspect]
     Indication: CHRONIC OBSTRUCTIVE PULMONARY DISEASE
     Route: 055
     Dates: start: 20051116
  2. ALBUTEROL [Concomitant]
  3. PROZAC [Concomitant]
  4. GEODON [Concomitant]
  5. KLONOPIN [Concomitant]
  6. AMBIEN [Concomitant]
  7. DITROPAN [Concomitant]
  8. ADVIL [Concomitant]

REACTIONS (2)
  - MOUTH ULCERATION [None]
  - WHEEZING [None]
